FAERS Safety Report 6373202-5 (Version None)
Quarter: 2009Q3

REPORT INFORMATION
  Report Type: 
  Country: None (occurrence: None)
  Receive Date: 20090924
  Receipt Date: 20090128
  Transmission Date: 20100115
  Serious: No
  Sender: FDA-Public Use
  Company Number: US-ASTRAZENECA-2009UW02473

PATIENT
  Sex: Male

DRUGS (3)
  1. SEROQUEL [Suspect]
     Route: 048
  2. HUMIRA [Suspect]
     Dosage: 40MG / 0.8 ML PREFILLED SYRINGE
     Dates: start: 20070718
  3. VITAMIN B-12 [Concomitant]

REACTIONS (4)
  - HEADACHE [None]
  - INFLUENZA LIKE ILLNESS [None]
  - PAIN [None]
  - WEIGHT INCREASED [None]
